FAERS Safety Report 7377498-2 (Version None)
Quarter: 2011Q1

REPORT INFORMATION
  Report Type: 
  Country: None (occurrence: None)
  Receive Date: 20110328
  Receipt Date: 20110318
  Transmission Date: 20110831
  Serious: Yes (Hospitalization, Other)
  Sender: FDA-Public Use
  Company Number: DE-AMGEN-QUU444866

PATIENT
  Age: 57 Year
  Sex: Female
  Weight: 84 kg

DRUGS (13)
  1. CITALOPRAM HYDROBROMIDE [Concomitant]
  2. ETANERCEPT [Suspect]
     Indication: RHEUMATOID ARTHRITIS
     Dosage: 50 MG, QWK
     Route: 058
     Dates: start: 20100111, end: 20100614
  3. BONDIOL [Concomitant]
     Indication: OSTEOPOROSIS
     Dosage: 1 A?G, UNK
     Dates: start: 20050801
  4. AMPARO [Concomitant]
     Indication: HYPERTENSION
     Dosage: 5 MG, UNK
     Dates: start: 20080901
  5. PREDNISOLONE [Suspect]
     Indication: RHEUMATOID ARTHRITIS
     Dosage: 7.5 MG, 1X/DAY
     Route: 048
     Dates: start: 19990101, end: 20100101
  6. VOLTAREN [Suspect]
     Indication: RHEUMATOID ARTHRITIS
     Dosage: 75-150 MG
     Dates: start: 20040201, end: 20100723
  7. VOLTAREN [Suspect]
     Indication: SPINAL CORD DISORDER
  8. PAROXETINE HCL [Concomitant]
     Indication: ANXIETY
     Dosage: 20 MG, UNK
     Dates: start: 20090601
  9. BONDIOL [Concomitant]
     Dosage: 1 UG, UNK
  10. PANTOPRAZOLE [Concomitant]
     Indication: GASTRITIS PROPHYLAXIS
     Dosage: 20 MG, UNK
     Dates: start: 20070101
  11. PREDNISOLONE [Suspect]
     Dosage: 9-10 MG, 1X/DAY
     Dates: start: 20100901
  12. CITALOPRAM HYDROBROMIDE [Concomitant]
     Indication: PANIC ATTACK
     Dosage: 40 MG, UNK
     Dates: start: 20090601
  13. HYDROCHLOROTHIAZIDE [Concomitant]
     Indication: HYPERTENSION
     Dosage: 12.5 MG, UNK

REACTIONS (6)
  - BURSITIS [None]
  - ERYSIPELAS [None]
  - ACUTE PRERENAL FAILURE [None]
  - INFLAMMATORY BOWEL DISEASE [None]
  - PROCTITIS ULCERATIVE [None]
  - INFECTION [None]
